FAERS Safety Report 24531731 (Version 4)
Quarter: 2024Q4

REPORT INFORMATION
  Report Type: Report from Study
  Country: SE (occurrence: SE)
  Receive Date: 20241022
  Receipt Date: 20241114
  Transmission Date: 20250115
  Serious: Yes (Hospitalization)
  Sender: ABBVIE
  Company Number: SE-ABBVIE-5917299

PATIENT
  Age: 70 Year
  Sex: Male

DRUGS (4)
  1. FOSCARBIDOPA\FOSLEVODOPA [Suspect]
     Active Substance: FOSCARBIDOPA\FOSLEVODOPA
     Indication: Parkinson^s disease
     Dosage: START INFUSION RATES (ML/H): LOW: 0.21. BASE: 0.36. HIGH: 0.40. EXTRA DOSE: 0.1. LOADING DOSE: 0....
     Route: 058
     Dates: start: 20240902
  2. FOSCARBIDOPA\FOSLEVODOPA [Suspect]
     Active Substance: FOSCARBIDOPA\FOSLEVODOPA
     Dosage: NEW INFUSION RATES (ML/H): LOW: 0.40. BASE: 0.42. HIGH: 0.46, LAST ADMIN DATE: 2024
     Route: 058
     Dates: start: 20240903
  3. FOSCARBIDOPA\FOSLEVODOPA [Suspect]
     Active Substance: FOSCARBIDOPA\FOSLEVODOPA
     Dosage: CURRENT BASE INFUSION RATE: 0.57 ML/H, LAST ADMIN DATE: 2024
     Route: 058
     Dates: start: 20241002
  4. FOSCARBIDOPA\FOSLEVODOPA [Suspect]
     Active Substance: FOSCARBIDOPA\FOSLEVODOPA
     Dosage: CURRENT INFUSION RATES (ML/H): LOW 0.60, BASE 0.61, HIGH 0.67, ?FIRST ADMIN DATE: 2024
     Route: 058

REACTIONS (10)
  - Musculoskeletal stiffness [Recovered/Resolved]
  - Infusion site pain [Recovered/Resolved]
  - Gait disturbance [Unknown]
  - On and off phenomenon [Recovered/Resolved]
  - Feeling abnormal [Unknown]
  - Therapeutic product effect incomplete [Unknown]
  - Drooling [Unknown]
  - Drug ineffective [Unknown]
  - Head discomfort [Not Recovered/Not Resolved]
  - Condition aggravated [Unknown]

NARRATIVE: CASE EVENT DATE: 20240101
